FAERS Safety Report 9008907 (Version 2)
Quarter: 2013Q2

REPORT INFORMATION
  Report Type: Report from Study
  Country: FR (occurrence: FR)
  Receive Date: 20130111
  Receipt Date: 20130423
  Transmission Date: 20140414
  Serious: Yes (Disabling)
  Sender: FDA-Public Use
  Company Number: FR-BAXTER-2013BAX000370

PATIENT
  Age: 11 Year
  Sex: Male
  Weight: 28.7 kg

DRUGS (3)
  1. ENDOXAN 2000 MG, LYOPHILISAT POUR SOLUTION INJECTABLE [Suspect]
     Indication: SARCOMA
     Route: 048
     Dates: start: 20110610
  2. BEVACIZUMAB [Suspect]
     Indication: SARCOMA
     Route: 042
     Dates: start: 20101103
  3. NAVELBINE_VINORELBINE TARTRATE 10.00 MG_SOLUTION FOR INJECTION_VIAL, G [Suspect]
     Indication: SARCOMA
     Route: 042
     Dates: start: 20110610

REACTIONS (1)
  - Hearing impaired [Not Recovered/Not Resolved]
